FAERS Safety Report 7139436-7 (Version None)
Quarter: 2010Q4

REPORT INFORMATION
  Report Type: 
  Country: None (occurrence: None)
  Receive Date: 20101206
  Receipt Date: 20101129
  Transmission Date: 20110411
  Serious: Yes (Other)
  Sender: FDA-Public Use
  Company Number: US-PFIZER INC-2010114436

PATIENT
  Sex: Female
  Weight: 74.83 kg

DRUGS (8)
  1. LYRICA [Suspect]
     Indication: FIBROMYALGIA
     Dosage: 75 MG, 2X/DAY
     Route: 048
  2. LYRICA [Suspect]
     Indication: PAIN
  3. LYRICA [Suspect]
     Indication: SLEEP DISORDER
  4. LYRICA [Suspect]
     Indication: LIMB DISCOMFORT
  5. SERZONE [Concomitant]
     Dosage: UNK
  6. KLONOPIN [Concomitant]
     Dosage: UNK
  7. MONTELUKAST [Concomitant]
     Dosage: UNK
  8. FLUTICASONE [Concomitant]
     Dosage: 50 UG, AS NEEDED

REACTIONS (7)
  - ACTIVITIES OF DAILY LIVING IMPAIRED [None]
  - BLOOD CHOLESTEROL INCREASED [None]
  - HYPERPHAGIA [None]
  - INCREASED APPETITE [None]
  - MEMORY IMPAIRMENT [None]
  - PAIN [None]
  - WEIGHT INCREASED [None]
